FAERS Safety Report 21693548 (Version 1)
Quarter: 2022Q4

REPORT INFORMATION
  Report Type: Spontaneous
  Country: US (occurrence: US)
  Receive Date: 20221207
  Receipt Date: 20221207
  Transmission Date: 20230113
  Serious: Yes (Other)
  Sender: FDA-Public Use
  Company Number: US-MYLANLABS-2022M1136458

PATIENT
  Age: 20 Year
  Sex: Male

DRUGS (3)
  1. CISPLATIN [Suspect]
     Active Substance: CISPLATIN
     Indication: Testicular germ cell cancer
     Dosage: UNK, CYCLE
     Route: 065
  2. BLEOMYCIN [Concomitant]
     Active Substance: BLEOMYCIN SULFATE
     Indication: Testicular germ cell cancer
     Dosage: UNK UNK, CYCLE
     Route: 065
  3. ETOPOSIDE [Concomitant]
     Active Substance: ETOPOSIDE
     Indication: Testicular germ cell cancer
     Dosage: UNK UNK, CYCLE
     Route: 065

REACTIONS (4)
  - Renal salt-wasting syndrome [Recovered/Resolved]
  - Abnormal loss of weight [Unknown]
  - Orthostatic hypotension [Unknown]
  - Hyponatraemia [Recovered/Resolved]
